FAERS Safety Report 20479651 (Version 5)
Quarter: 2022Q1

REPORT INFORMATION
  Report Type: Report from Study
  Country: BR (occurrence: BR)
  Receive Date: 20220216
  Receipt Date: 20220323
  Transmission Date: 20220423
  Serious: Yes (Hospitalization, Other)
  Sender: FDA-Public Use
  Company Number: BR-ABBVIE-22K-020-4279647-00

PATIENT
  Age: 64 Year
  Sex: Female
  Weight: 93 kg

DRUGS (1)
  1. RINVOQ [Suspect]
     Active Substance: UPADACITINIB
     Indication: Rheumatoid arthritis
     Route: 048

REACTIONS (11)
  - H3N2 influenza [Unknown]
  - Cardio-respiratory arrest [Unknown]
  - Oxygen saturation decreased [Unknown]
  - COVID-19 [Unknown]
  - Aphonia [Recovered/Resolved]
  - Thrombocytopenia [Recovered/Resolved]
  - Acinetobacter infection [Recovering/Resolving]
  - Incorrect route of product administration [Unknown]
  - Diabetes mellitus [Unknown]
  - Weight decreased [Unknown]
  - Confusional state [Unknown]

NARRATIVE: CASE EVENT DATE: 20211221
